FAERS Safety Report 4592545-9 (Version None)
Quarter: 2005Q1

REPORT INFORMATION
  Report Type: 
  Country: None (occurrence: None)
  Receive Date: 20050228
  Receipt Date: 20050217
  Transmission Date: 20050727
  Serious: Yes (Death)
  Sender: FDA-Public Use
  Company Number: US-JNJFOC-20050205191

PATIENT
  Sex: Male
  Weight: 79.38 kg

DRUGS (2)
  1. EXTRA STRENGTH TYLENOL [Suspect]
     Route: 049
  2. EXTRA STRENGTH TYLENOL [Suspect]
     Indication: PAIN
     Route: 049

REACTIONS (4)
  - ABASIA [None]
  - INADEQUATE ANALGESIA [None]
  - METASTATIC NEOPLASM [None]
  - RENAL CANCER METASTATIC [None]
